FAERS Safety Report 11924685 (Version 2)
Quarter: 2016Q2

REPORT INFORMATION
  Report Type: Spontaneous
  Country: US (occurrence: US)
  Receive Date: 20160118
  Receipt Date: 20160412
  Transmission Date: 20160815
  Serious: Yes (Other)
  Sender: FDA-Public Use
  Company Number: US-SA-2016SA006125

PATIENT
  Age: 72 Year
  Sex: Female

DRUGS (4)
  1. LANTUS SOLOSTAR [Suspect]
     Active Substance: INSULIN GLARGINE
     Indication: TYPE 2 DIABETES MELLITUS
     Dosage: DOSE:30 UNIT(S)
     Route: 065
     Dates: start: 2006
  2. ASPIRIN. [Concomitant]
     Active Substance: ASPIRIN
  3. POTASSIUM [Concomitant]
     Active Substance: POTASSIUM
  4. SOLOSTAR [Suspect]
     Active Substance: DEVICE
     Indication: TYPE 2 DIABETES MELLITUS
     Dates: start: 2006

REACTIONS (8)
  - Eye operation [Unknown]
  - Spinal operation [Unknown]
  - Carpal tunnel decompression [Unknown]
  - Foot operation [Unknown]
  - Toe operation [Unknown]
  - Wrong technique in product usage process [Unknown]
  - Blood glucose increased [Unknown]
  - Fall [Unknown]
